FAERS Safety Report 20616108 (Version 1)
Quarter: 2022Q1

REPORT INFORMATION
  Report Type: Spontaneous
  Country: US (occurrence: US)
  Receive Date: 20220321
  Receipt Date: 20220321
  Transmission Date: 20220424
  Serious: Yes (Hospitalization)
  Sender: FDA-Public Use
  Company Number: US-GLAXOSMITHKLINE-US2022046023

PATIENT
  Age: 62 Year
  Sex: Female

DRUGS (1)
  1. BREO ELLIPTA [Suspect]
     Active Substance: FLUTICASONE FUROATE\VILANTEROL TRIFENATATE
     Indication: Product used for unknown indication
     Dosage: UNK

REACTIONS (9)
  - Hospitalisation [Not Recovered/Not Resolved]
  - Visual impairment [Unknown]
  - Vision blurred [Unknown]
  - Colon operation [Unknown]
  - Intervertebral disc degeneration [Unknown]
  - Arthritis [Unknown]
  - Osteoporosis [Unknown]
  - Fibromyalgia [Unknown]
  - Lung disorder [Unknown]

NARRATIVE: CASE EVENT DATE: 20210601
